FAERS Safety Report 10154911 (Version 1)
Quarter: 2014Q2

REPORT INFORMATION
  Report Type: Spontaneous
  Country: US (occurrence: US)
  Receive Date: 20140506
  Receipt Date: 20140506
  Transmission Date: 20141212
  Serious: Yes (Other)
  Sender: FDA-Public Use
  Company Number: US-SA-2014SA057837

PATIENT
  Sex: 0

DRUGS (2)
  1. NASACORT ALLERGY [Suspect]
     Indication: HYPERSENSITIVITY
     Route: 065
  2. NASACORT ALLERGY [Suspect]
     Indication: NASAL DISORDER
     Route: 065

REACTIONS (3)
  - Pneumonia [Unknown]
  - Sinusitis [Unknown]
  - Epistaxis [Unknown]
